FAERS Safety Report 5590348-X (Version None)
Quarter: 2008Q1

REPORT INFORMATION
  Report Type: 
  Country: None (occurrence: None)
  Receive Date: 20080109
  Receipt Date: 20071228
  Transmission Date: 20080703
  Serious: Yes (Hospitalization)
  Sender: FDA-Public Use
  Company Number: 231539J07USA

PATIENT
  Age: 68 Year
  Sex: Female
  Weight: 42.1845 kg

DRUGS (4)
  1. REBIF [Suspect]
     Indication: MULTIPLE SCLEROSIS
     Dosage: 44 MCG, 3 IN 1 WEEKS, SUBCUTANEOUS
     Route: 058
     Dates: start: 20060522
  2. SINGULAIR (MONTELUKAST /01362601/) [Concomitant]
  3. NIFEDIAC (NIFEDIPINE) [Concomitant]
  4. BACLOFEN [Concomitant]

REACTIONS (7)
  - ARTHRALGIA [None]
  - DIZZINESS [None]
  - FALL [None]
  - GAIT DISTURBANCE [None]
  - HIP FRACTURE [None]
  - JOINT INJURY [None]
  - SYNCOPE [None]
